FAERS Safety Report 7623772-1 (Version None)
Quarter: 2011Q3

REPORT INFORMATION
  Report Type: 
  Country: None (occurrence: None)
  Receive Date: 20110720
  Receipt Date: 20110713
  Transmission Date: 20111222
  Serious: Yes (Other)
  Sender: FDA-Public Use
  Company Number: PH-GLAXOSMITHKLINE-B0733847A

PATIENT
  Age: 81 Year
  Sex: Male

DRUGS (1)
  1. ARIXTRA [Suspect]
     Indication: PULMONARY EMBOLISM
     Dosage: 2.5MG PER DAY
     Route: 065
     Dates: start: 20110703, end: 20110708

REACTIONS (2)
  - HAEMOTHORAX [None]
  - MALIGNANT PLEURAL EFFUSION [None]
